FAERS Safety Report 16782476 (Version 2)
Quarter: 2019Q3

REPORT INFORMATION
  Report Type: Report from Study
  Country: US (occurrence: US)
  Receive Date: 20190906
  Receipt Date: 20190913
  Transmission Date: 20191005
  Serious: Yes (Hospitalization)
  Sender: FDA-Public Use
  Company Number: US-EISAI MEDICAL RESEARCH-EC-2019-060642

PATIENT
  Age: 77 Year
  Sex: Female
  Weight: 72 kg

DRUGS (15)
  1. BACTRIM [Concomitant]
     Active Substance: SULFAMETHOXAZOLE\TRIMETHOPRIM
  2. LENVIMA [Suspect]
     Active Substance: LENVATINIB
     Indication: THYROID CANCER METASTATIC
     Route: 048
     Dates: start: 20190808, end: 201908
  3. LENVIMA [Suspect]
     Active Substance: LENVATINIB
     Route: 048
     Dates: start: 201908, end: 20190912
  4. ATENOLOL. [Concomitant]
     Active Substance: ATENOLOL
  5. XANAX [Concomitant]
     Active Substance: ALPRAZOLAM
  6. LISINOPRIL. [Concomitant]
     Active Substance: LISINOPRIL
  7. VITAMIN B12 [Concomitant]
     Active Substance: CYANOCOBALAMIN
  8. ALPRAZOLAM. [Concomitant]
     Active Substance: ALPRAZOLAM
  9. LEVOTHYROXINE. [Concomitant]
     Active Substance: LEVOTHYROXINE
  10. ZYRTEC [Concomitant]
     Active Substance: CETIRIZINE HYDROCHLORIDE
  11. HYDROXYZINE [Concomitant]
     Active Substance: HYDROXYZINE HYDROCHLORIDE
  12. EZETIMIBE. [Concomitant]
     Active Substance: EZETIMIBE
  13. LETROZOLE. [Concomitant]
     Active Substance: LETROZOLE
  14. IRON [Concomitant]
     Active Substance: IRON
  15. METHYLPREDNISOLONE. [Concomitant]
     Active Substance: METHYLPREDNISOLONE

REACTIONS (13)
  - Cough [Not Recovered/Not Resolved]
  - Headache [Unknown]
  - Diarrhoea [Unknown]
  - Inappropriate antidiuretic hormone secretion [Recovered/Resolved]
  - Fatigue [Unknown]
  - Insomnia [Unknown]
  - Faeces discoloured [Unknown]
  - Blood sodium decreased [Unknown]
  - Hypertension [Not Recovered/Not Resolved]
  - Urinary tract infection [Unknown]
  - Onychoclasis [Unknown]
  - Haematochezia [Unknown]
  - Dysphonia [Unknown]

NARRATIVE: CASE EVENT DATE: 201908
